FAERS Safety Report 8607529-0 (Version None)
Quarter: 2012Q3

REPORT INFORMATION
  Report Type: 
  Country: None (occurrence: None)
  Receive Date: 20120821
  Receipt Date: 20120814
  Transmission Date: 20120928
  Serious: No
  Sender: FDA-Public Use
  Company Number: US-B.I. PHARMACEUTICALS,INC./RIDGEFIELD-2012-BP-19304BP

PATIENT
  Sex: Male

DRUGS (7)
  1. CALCIUM [Concomitant]
     Indication: SUPPLEMENTATION THERAPY
  2. FISH OIL [Concomitant]
     Indication: SUPPLEMENTATION THERAPY
  3. LIPITOR [Concomitant]
     Indication: BLOOD CHOLESTEROL INCREASED
     Dosage: 5 MG
     Route: 048
  4. MICARDIS [Suspect]
     Indication: HYPERTENSION
     Dosage: 40 MG
     Route: 048
     Dates: start: 20050101
  5. VITAMIN B-12 [Concomitant]
     Indication: SUPPLEMENTATION THERAPY
  6. RANITIDINE [Concomitant]
     Indication: GASTROOESOPHAGEAL REFLUX DISEASE
     Dosage: 300 MG
     Route: 048
  7. OSTEO BI FLEX [Concomitant]

REACTIONS (2)
  - BLOOD GLUCOSE INCREASED [None]
  - RENAL DISORDER [None]
